FAERS Safety Report 17204321 (Version 3)
Quarter: 2021Q1

REPORT INFORMATION
  Report Type: Report from Study
  Country: CA (occurrence: CA)
  Receive Date: 20191226
  Receipt Date: 20210223
  Transmission Date: 20210419
  Serious: Yes (Other)
  Sender: FDA-Public Use
  Company Number: CA-JNJFOC-20191230267

PATIENT
  Age: 39 Year
  Sex: Female
  Weight: 81 kg

DRUGS (2)
  1. STELARA [Suspect]
     Active Substance: USTEKINUMAB
     Route: 058
  2. STELARA [Suspect]
     Active Substance: USTEKINUMAB
     Indication: PSORIASIS
     Route: 058
     Dates: start: 20160210

REACTIONS (4)
  - Off label use [Unknown]
  - Staphylococcal infection [Not Recovered/Not Resolved]
  - Therapeutic response decreased [Unknown]
  - Incorrect dose administered [Unknown]
